FAERS Safety Report 9507101 (Version 1)
Quarter: 2013Q1

REPORT INFORMATION
  Report Type: Spontaneous
  Country: US (occurrence: None)
  Receive Date: 20130305
  Receipt Date: 20130305
  Transmission Date: 20140127
  Serious: Yes (Other)
  Sender: FDA-Public Use
  Company Number: 163-21880-12030282

PATIENT
  Age: 52 Year
  Sex: Female
  Weight: 88.9 kg

DRUGS (5)
  1. REVLIMID [Suspect]
     Indication: MYELODYSPLASTIC SYNDROME
     Route: 048
     Dates: start: 20110826
  2. PREMARIN (ESTROGENS CONJUGATED) [Concomitant]
  3. CYMBALTA (DULOXETINE HYDROCHLORIDE) [Concomitant]
  4. NEXIUM [Concomitant]
  5. GABAPENTIN (GABAPENTIN) [Concomitant]

REACTIONS (1)
  - Neutropenia [None]
